FAERS Safety Report 16816636 (Version 3)
Quarter: 2020Q4

REPORT INFORMATION
  Report Type: Spontaneous
  Country: US (occurrence: US)
  Receive Date: 20190917
  Receipt Date: 20201215
  Transmission Date: 20210113
  Serious: Yes (Death, Hospitalization, Other)
  Sender: FDA-Public Use
  Company Number: US-GLAXOSMITHKLINE-US2019AMR167877

PATIENT
  Age: 48 Year
  Sex: Female

DRUGS (4)
  1. NUCALA [Suspect]
     Active Substance: MEPOLIZUMAB
     Indication: PULMONARY OEDEMA
  2. NUCALA [Suspect]
     Active Substance: MEPOLIZUMAB
     Indication: PULMONARY OEDEMA
  3. NUCALA [Suspect]
     Active Substance: MEPOLIZUMAB
     Indication: CARDIAC DISORDER
     Dosage: UNK
  4. NUCALA [Suspect]
     Active Substance: MEPOLIZUMAB
     Indication: CARDIAC DISORDER
     Dosage: UNK
     Route: 065
     Dates: start: 201908

REACTIONS (6)
  - Cardiac operation [Unknown]
  - Product dose omission issue [Unknown]
  - Death [Fatal]
  - Complication associated with device [Unknown]
  - Catheter placement [Unknown]
  - Product use in unapproved indication [Unknown]

NARRATIVE: CASE EVENT DATE: 201908
